FAERS Safety Report 7954813-X (Version None)
Quarter: 2011Q4

REPORT INFORMATION
  Report Type: 
  Country: None (occurrence: None)
  Receive Date: 20111202
  Receipt Date: 20111118
  Transmission Date: 20120403
  Serious: Yes (Hospitalization)
  Sender: FDA-Public Use
  Company Number: BR-MEDIMMUNE-MEDI-0013974

PATIENT
  Sex: Female
  Weight: 8.41 kg

DRUGS (4)
  1. KALYAMON [Concomitant]
     Route: 048
  2. PREDNISOLONE SODIUM SUCCINATE INJ [Concomitant]
     Indication: BRONCHIOLITIS
     Route: 048
  3. SYNAGIS [Suspect]
     Route: 030
     Dates: start: 20100701
  4. FERROGLYCINATE CHELATE (DROPS) [Concomitant]
     Indication: PROPHYLAXIS
     Route: 048

REACTIONS (8)
  - BRONCHIOLITIS [None]
  - LUNG INFILTRATION [None]
  - BRONCHOPNEUMONIA [None]
  - SWELLING [None]
  - FATIGUE [None]
  - CRYING [None]
  - PAIN [None]
  - FLATULENCE [None]
